FAERS Safety Report 18238306 (Version 1)
Quarter: 2020Q3

REPORT INFORMATION
  Report Type: Report from Study
  Country: US (occurrence: US)
  Receive Date: 20200907
  Receipt Date: 20200907
  Transmission Date: 20201103
  Serious: Yes (Other)
  Sender: FDA-Public Use
  Company Number: US-UCBSA-2020034082

PATIENT
  Age: 75 Year
  Sex: Female

DRUGS (1)
  1. LACOSAMIDE. [Suspect]
     Active Substance: LACOSAMIDE
     Indication: EPILEPSY
     Dosage: 200MG HALF TABLET IN AM AND 1 TABLET AT NIGHT

REACTIONS (5)
  - Chronic obstructive pulmonary disease [Not Recovered/Not Resolved]
  - Speech disorder [Not Recovered/Not Resolved]
  - Product availability issue [Unknown]
  - Therapy interrupted [Unknown]
  - Product use issue [Unknown]

NARRATIVE: CASE EVENT DATE: 202007
